FAERS Safety Report 8805384 (Version 1)
Quarter: 2012Q4

REPORT INFORMATION
  Report Type: 
  Country: TH (occurrence: TH)
  Receive Date: 20120924
  Receipt Date: 20120924
  Transmission Date: 20130627
  Serious: Yes (Death, Other)
  Sender: FDA-Public Use
  Company Number: PHHO2006TH08141

PATIENT
  Sex: Male

DRUGS (2)
  1. GLIVEC [Suspect]
     Dosage: 800 mg, Daily
     Dates: start: 20041214
  2. GLIVEC [Suspect]
     Dosage: 600mg QD
     Route: 048
     Dates: start: 20051117

REACTIONS (3)
  - Renal failure [Fatal]
  - Thrombocytopenia [Unknown]
  - Leukopenia [Unknown]
